FAERS Safety Report 7207835-0 (Version None)
Quarter: 2010Q4

REPORT INFORMATION
  Report Type: 
  Country: None (occurrence: None)
  Receive Date: 20101221
  Receipt Date: 20101214
  Transmission Date: 20110411
  Serious: Yes (Life-Threatening, Disabling, Other)
  Sender: FDA-Public Use
  Company Number: GB-GDP-10408994

PATIENT
  Age: 75 Year
  Sex: Female

DRUGS (1)
  1. METVIX (METHYL AMINOLEVULINATE HYDROCHLORIDE) 16.8% [Suspect]
     Indication: ACTINIC KERATOSIS
     Dosage: (TOPICAL)
     Route: 061
     Dates: start: 20100623

REACTIONS (2)
  - INFECTION [None]
  - OEDEMA PERIPHERAL [None]
